FAERS Safety Report 6734256-7 (Version None)
Quarter: 2010Q2

REPORT INFORMATION
  Report Type: 
  Country: None (occurrence: None)
  Receive Date: 20100520
  Receipt Date: 20100517
  Transmission Date: 20101027
  Serious: Yes (Life-Threatening, Hospitalization)
  Sender: FDA-Public Use
  Company Number: PHHO2010GB05189

PATIENT
  Sex: Female
  Weight: 87.2 kg

DRUGS (1)
  1. CGS 20267 T30748+TAB [Suspect]
     Indication: BREAST CANCER
     Dosage: 2.5 MG, QD
     Route: 048
     Dates: start: 20070711

REACTIONS (8)
  - ANAEMIA [None]
  - DYSPNOEA [None]
  - FATIGUE [None]
  - HIATUS HERNIA [None]
  - METASTASES TO BONE [None]
  - METASTASES TO BONE MARROW [None]
  - PALPITATIONS [None]
  - PANCYTOPENIA [None]
